FAERS Safety Report 4404171-2 (Version None)
Quarter: 2004Q3

REPORT INFORMATION
  Report Type: 
  Country: None (occurrence: None)
  Receive Date: 20040721
  Receipt Date: 20040721
  Transmission Date: 20050211
  Serious: Yes (Hospitalization)
  Sender: FDA-Public Use
  Company Number: None

PATIENT
  Age: 73 Year
  Sex: Male
  Weight: 53.8 kg

DRUGS (16)
  1. LISINOPRIL [Suspect]
     Indication: HYPERTENSION
     Dosage: 20MG ORAL
     Route: 048
  2. SOTALOL HCL [Concomitant]
  3. CODEINE 30/ ACETAMINOPHEN 200MG [Concomitant]
  4. DEXAMETHASONE [Concomitant]
  5. PHENYTOIN NA [Concomitant]
  6. SENNOSIDES [Concomitant]
  7. RABEPRAZOLE NA [Concomitant]
  8. DM 10/ GUAIFENESN [Concomitant]
  9. DOCUSATE NA [Concomitant]
  10. FUROSEMIDE [Concomitant]
  11. MULTI-VITAMIN [Concomitant]
  12. ALBUTEROL 90 / IPRATROP 18MCG [Concomitant]
  13. DIGOXIN [Concomitant]
  14. LOPERAMIDE HCL [Concomitant]
  15. COLCHINE [Concomitant]
  16. ACETAMINOPHEN [Concomitant]

REACTIONS (1)
  - HYPERKALAEMIA [None]
